FAERS Safety Report 8091849-5 (Version None)
Quarter: 2012Q1

REPORT INFORMATION
  Report Type: 
  Country: None (occurrence: None)
  Receive Date: 20120130
  Receipt Date: 20120130
  Transmission Date: 20120608
  Serious: Yes (Hospitalization)
  Sender: FDA-Public Use
  Company Number: None

PATIENT
  Weight: 88 kg

DRUGS (14)
  1. BELATACEPT 250 MG. VIALS BRISTOL-MYERS SQUIBB [Suspect]
     Indication: IMMUNOSUPPRESSION
     Dosage: 10 MG/KG
     Dates: start: 20111028
  2. K PHOS NEUTRAL [Concomitant]
  3. LASIX [Concomitant]
  4. CELLCEPT [Concomitant]
  5. POTASSIUM CHLORIDE [Concomitant]
  6. AMBIEN [Concomitant]
  7. ASPIRIN [Concomitant]
  8. BACTRIM [Concomitant]
  9. PREDNISONE TAB [Concomitant]
  10. VALCYTE [Concomitant]
  11. LANTUS [Concomitant]
  12. SERTRALINE HYDROCHLORIDE [Concomitant]
  13. MULTI-VITAMINS [Concomitant]
  14. ASPART INSULIN [Concomitant]

REACTIONS (4)
  - OEDEMA PERIPHERAL [None]
  - INCISION SITE PAIN [None]
  - PERITONEAL HAEMATOMA [None]
  - INCISIONAL HERNIA [None]
